FAERS Safety Report 9836294 (Version 2)
Quarter: 2014Q1

REPORT INFORMATION
  Report Type: Spontaneous
  Country: US (occurrence: US)
  Receive Date: 20140123
  Receipt Date: 20140205
  Transmission Date: 20141002
  Serious: Yes (Hospitalization)
  Sender: FDA-Public Use
  Company Number: US-BIOGENIDEC-2014BI004733

PATIENT
  Age: 55 Year
  Sex: Female

DRUGS (22)
  1. TYSABRI [Suspect]
     Indication: MULTIPLE SCLEROSIS
     Route: 042
     Dates: start: 20090120, end: 20130702
  2. ZOFRAN [Concomitant]
  3. NEXIUM [Concomitant]
  4. BONIVA [Concomitant]
  5. CHANTIX [Concomitant]
  6. CARAFATE [Concomitant]
  7. CELEBREX [Concomitant]
  8. SYNTHROID [Concomitant]
  9. KLOR-CON [Concomitant]
  10. PRAVASTATIN [Concomitant]
  11. OXYBUTYNIN [Concomitant]
  12. PREMARIN [Concomitant]
  13. LITHIUM [Concomitant]
  14. XANAX [Concomitant]
  15. ARICEPT [Concomitant]
  16. SEROQUEL [Concomitant]
  17. DILANTIN [Concomitant]
  18. DILAUDID [Concomitant]
     Indication: PAIN
  19. FENTANYL [Concomitant]
     Indication: PAIN
  20. VITAMIN D [Concomitant]
  21. FISH OIL [Concomitant]
  22. AMANTADINE [Concomitant]

REACTIONS (1)
  - Toxicity to various agents [Recovered/Resolved]
